FAERS Safety Report 21440289 (Version 1)
Quarter: 2022Q4

REPORT INFORMATION
  Report Type: Spontaneous
  Country: US (occurrence: None)
  Receive Date: 20221010
  Receipt Date: 20221010
  Transmission Date: 20230113
  Serious: No
  Sender: FDA-Public Use
  Company Number: None

PATIENT
  Sex: Female

DRUGS (2)
  1. OPSUMIT [Suspect]
     Active Substance: MACITENTAN
     Indication: Pulmonary arterial hypertension
     Dosage: 10MG ONCE DAILY ORAL
     Route: 048
     Dates: start: 20190426
  2. ORENITRAM [Suspect]
     Active Substance: TREPROSTINIL

REACTIONS (3)
  - Blood pressure decreased [None]
  - Palpitations [None]
  - Pulmonary thrombosis [Recovered/Resolved with Sequelae]
